FAERS Safety Report 21263625 (Version 1)
Quarter: 2022Q3

REPORT INFORMATION
  Report Type: Spontaneous
  Country: CN (occurrence: CN)
  Receive Date: 20220829
  Receipt Date: 20220829
  Transmission Date: 20221027
  Serious: Yes (Hospitalization)
  Sender: FDA-Public Use
  Company Number: CN-ORGANON-O2208CHN001799

PATIENT
  Age: 68 Year
  Sex: Female

DRUGS (2)
  1. DIPROSPAN [Suspect]
     Active Substance: BETAMETHASONE DIPROPIONATE\BETAMETHASONE SODIUM PHOSPHATE
     Indication: Arthralgia
     Dosage: 4 MILLIGRAM, QD (ALSO REPORTED AS DIPROSPAN 5MG:2MG/ML (2MG, 2VIALS))
     Route: 014
     Dates: start: 20220708, end: 20220715
  2. DIPROSPAN [Suspect]
     Active Substance: BETAMETHASONE DIPROPIONATE\BETAMETHASONE SODIUM PHOSPHATE
     Indication: Osteoarthritis

REACTIONS (2)
  - Cushingoid [Not Recovered/Not Resolved]
  - Central obesity [Not Recovered/Not Resolved]

NARRATIVE: CASE EVENT DATE: 20220720
